FAERS Safety Report 4286788-1 (Version None)
Quarter: 2004Q1

REPORT INFORMATION
  Report Type: 
  Country: None (occurrence: None)
  Receive Date: 20040204
  Receipt Date: 20040126
  Transmission Date: 20041129
  Serious: Yes (Other)
  Sender: FDA-Public Use
  Company Number: 2004005665

PATIENT
  Sex: Female

DRUGS (1)
  1. ZYRTEC [Suspect]
     Indication: HYPERSENSITIVITY
     Dosage: ORAL
     Route: 048
     Dates: start: 20030101, end: 20030101

REACTIONS (4)
  - BLOOD MAGNESIUM DECREASED [None]
  - FEELING ABNORMAL [None]
  - MOBILITY DECREASED [None]
  - MUSCLE CRAMP [None]
